FAERS Safety Report 9682251 (Version 2)
Quarter: 2013Q4

REPORT INFORMATION
  Report Type: Spontaneous
  Country: US (occurrence: US)
  Receive Date: 20131112
  Receipt Date: 20131112
  Transmission Date: 20140711
  Serious: Yes (Death, Hospitalization, Other)
  Sender: FDA-Public Use
  Company Number: US-PFIZER INC-2013234785

PATIENT
  Age: 83 Year
  Sex: Male
  Weight: 61.8 kg

DRUGS (14)
  1. BOSULIF [Suspect]
     Indication: CHRONIC MYELOID LEUKAEMIA
     Dosage: 400 MG, UNK
     Route: 048
     Dates: start: 20121018
  2. BOSULIF [Suspect]
     Dosage: 200-400 (UNIT NOT PROVIDED)
     Route: 048
     Dates: end: 20121030
  3. BOSULIF [Suspect]
     Dosage: 300 MG, 1X/DAY
     Dates: start: 20121226
  4. BOSULIF [Suspect]
     Dosage: 500 MG, 1X/DAY
     Route: 048
     Dates: start: 20121101, end: 20130218
  5. BOSULIF [Suspect]
     Dosage: 300 MG, 1X/DAY
     Route: 048
     Dates: start: 20130313, end: 20130512
  6. BOSULIF [Suspect]
     Dosage: 30 MG, DAILY
  7. TYLENOL [Concomitant]
     Dosage: 325 MG, EVERY FOUR HOURS, AS NEEDED
     Route: 048
  8. TUMS [Concomitant]
     Dosage: 500 UNK
     Route: 048
  9. VASOTEC [Concomitant]
     Dosage: 2.5 MG, 1X/DAY
     Route: 048
  10. LASIX [Concomitant]
     Dosage: 40 MG, 1X/DAY
     Route: 048
  11. LASIX [Concomitant]
     Dosage: 20 MG, 1X/DAY
  12. LOPRESSOR [Concomitant]
     Dosage: 15 MG TAKE 2 TABS, 2X/DAY
     Route: 048
  13. CUMADIN [Concomitant]
     Dosage: 7.5 MG M-N-F AND 5 MG DAILY REST OF THE WEEK
     Route: 048
  14. IMODIUM [Concomitant]
     Indication: DIARRHOEA
     Dosage: 2 MG TAKE 1 CAP, FOUR TIMES AS NEEDED
     Route: 048

REACTIONS (12)
  - Death [Fatal]
  - Dysphagia [Unknown]
  - Oesophageal disorder [Unknown]
  - Aphagia [Recovered/Resolved]
  - Gastritis erosive [Unknown]
  - Gastric ulcer [Unknown]
  - Eschar [Unknown]
  - Erosive duodenitis [Unknown]
  - Atrial fibrillation [Unknown]
  - Cardiac failure congestive [Unknown]
  - Diarrhoea [Unknown]
  - Cardiac disorder [Unknown]
